FAERS Safety Report 16292072 (Version 2)
Quarter: 2019Q3

REPORT INFORMATION
  Report Type: Report from Study
  Country: US (occurrence: US)
  Receive Date: 20190509
  Receipt Date: 20190813
  Transmission Date: 20191004
  Serious: Yes (Hospitalization)
  Sender: FDA-Public Use
  Company Number: US-ALKERMES INC.-ALK-2018-002886

PATIENT
  Age: 59 Year
  Sex: Male

DRUGS (7)
  1. BLINDED BUPROPION [Suspect]
     Active Substance: BUPROPION
     Indication: SUBSTANCE USE DISORDER
     Dosage: UNK MG, Q3WK
     Route: 030
     Dates: start: 20180222, end: 20180315
  2. BLINDED PLACEBO [Suspect]
     Active Substance: INVESTIGATIONAL PRODUCT
     Dosage: UNK UNK, QD
     Route: 048
     Dates: start: 20180222, end: 20180520
  3. VITAMIN D2 [Concomitant]
     Active Substance: ERGOCALCIFEROL
     Indication: PRODUCT USED FOR UNKNOWN INDICATION
     Dosage: 50000 IU, UNK
     Route: 048
  4. BLINDED BUPROPION [Suspect]
     Active Substance: BUPROPION
     Dosage: UNK UNK, QD
     Route: 048
     Dates: start: 20180222, end: 20180520
  5. BLINDED PLACEBO [Suspect]
     Active Substance: INVESTIGATIONAL PRODUCT
     Indication: SUBSTANCE USE DISORDER
     Dosage: UNK MG, Q3WK
     Route: 030
     Dates: start: 20180222, end: 20180315
  6. VIVITROL [Suspect]
     Active Substance: NALTREXONE
     Indication: SUBSTANCE USE DISORDER
     Dosage: UNK MG, Q3WK
     Route: 030
     Dates: start: 20180222, end: 20180315
  7. VIVITROL [Suspect]
     Active Substance: NALTREXONE
     Dosage: UNK UNK, QD
     Route: 048
     Dates: start: 20180222, end: 20180520

REACTIONS (1)
  - Neck pain [Recovered/Resolved]

NARRATIVE: CASE EVENT DATE: 20180523
